FAERS Safety Report 4869112-2 (Version None)
Quarter: 2005Q4

REPORT INFORMATION
  Report Type: 
  Country: None (occurrence: None)
  Receive Date: 20051230
  Receipt Date: 20051219
  Transmission Date: 20060501
  Serious: Yes (Hospitalization)
  Sender: FDA-Public Use
  Company Number: US-JNJFOC-20050806468

PATIENT
  Sex: Male
  Weight: 91.63 kg

DRUGS (20)
  1. REMICADE [Suspect]
     Indication: ANKYLOSING SPONDYLITIS
     Route: 042
  2. ALLEGRA [Concomitant]
  3. OXYCONTIN [Concomitant]
  4. M.V.I. [Concomitant]
  5. M.V.I. [Concomitant]
  6. M.V.I. [Concomitant]
  7. M.V.I. [Concomitant]
  8. M.V.I. [Concomitant]
  9. M.V.I. [Concomitant]
  10. M.V.I. [Concomitant]
  11. M.V.I. [Concomitant]
  12. PERCOCET [Concomitant]
  13. PERCOCET [Concomitant]
  14. COUMADIN [Concomitant]
  15. LEXAPRO [Concomitant]
  16. PANCREASE [Concomitant]
  17. COLAZAL [Concomitant]
  18. FOLIC ACID [Concomitant]
  19. PREDNISONE 50MG TAB [Concomitant]
  20. GLYBURIDE [Concomitant]

REACTIONS (7)
  - CHILLS [None]
  - FEELING COLD [None]
  - FLUSHING [None]
  - HEART RATE INCREASED [None]
  - INFUSION RELATED REACTION [None]
  - NAUSEA [None]
  - PALLOR [None]
